FAERS Safety Report 4787755-1 (Version None)
Quarter: 2005Q3

REPORT INFORMATION
  Report Type: 
  Country: None (occurrence: None)
  Receive Date: 20050914
  Receipt Date: 20050120
  Transmission Date: 20060218
  Serious: Yes (Death, Hospitalization)
  Sender: FDA-Public Use
  Company Number: 163-20785-05010366

PATIENT
  Age: 78 Year
  Sex: Female
  Weight: 61.5 kg

DRUGS (4)
  1. THALOMID [Suspect]
     Indication: OVARIAN EPITHELIAL CANCER
     Dosage: 200MG PO QHS ON DAYS 1-7 W/DOSE ESCALATION 100MG WEEKLY TO 400 MG MAX. CYCLE-4WKS.
     Route: 048
     Dates: start: 20041103, end: 20050103
  2. CARBOPLATIN [Suspect]
     Indication: OVARIAN EPITHELIAL CANCER
     Dates: start: 20031101, end: 20040401
  3. GEMCITABIN (GEMCITABINE) [Suspect]
     Indication: OVARIAN EPITHELIAL CANCER
     Dates: start: 20031101, end: 20040401
  4. PACLITAXEL [Suspect]
     Indication: OVARIAN EPITHELIAL CANCER
     Dates: start: 20031101, end: 20040401

REACTIONS (11)
  - APNOEA [None]
  - COMA [None]
  - DEATH [None]
  - DEEP VEIN THROMBOSIS [None]
  - DISEASE PROGRESSION [None]
  - DYSPNOEA [None]
  - HYPOXIA [None]
  - NAUSEA [None]
  - OEDEMA PERIPHERAL [None]
  - PAIN [None]
  - PULMONARY EMBOLISM [None]
